FAERS Safety Report 17758650 (Version 1)
Quarter: 2020Q2

REPORT INFORMATION
  Report Type: Report from Study
  Country: US (occurrence: US)
  Receive Date: 20200507
  Receipt Date: 20200507
  Transmission Date: 20200714
  Serious: Yes (Hospitalization)
  Sender: FDA-Public Use
  Company Number: US-ACTELION-A-NJ2017-153626

PATIENT
  Age: 31 Year
  Sex: Female
  Weight: 87.98 kg

DRUGS (3)
  1. VELETRI [Suspect]
     Active Substance: EPOPROSTENOL
     Indication: PULMONARY ARTERIAL HYPERTENSION
     Dosage: 21 NG/KG, PER MIN
     Route: 042
  2. OPSUMIT [Suspect]
     Active Substance: MACITENTAN
     Indication: PULMONARY ARTERIAL HYPERTENSION
     Dosage: 10 MG, QD
     Route: 048
     Dates: start: 20170217
  3. ADCIRCA [Suspect]
     Active Substance: TADALAFIL
     Indication: PRODUCT USED FOR UNKNOWN INDICATION
     Dosage: UNK
     Route: 065
     Dates: start: 20170428, end: 20170501

REACTIONS (6)
  - Eyelid oedema [Unknown]
  - Vascular device infection [Recovered/Resolved]
  - Staphylococcal infection [Recovered/Resolved]
  - Swelling face [Unknown]
  - Dyspnoea [Unknown]
  - Hospitalisation [Unknown]

NARRATIVE: CASE EVENT DATE: 20170301
